FAERS Safety Report 11238899 (Version 1)
Quarter: 2015Q3

REPORT INFORMATION
  Report Type: Report from Study
  Country: AU (occurrence: AU)
  Receive Date: 20150706
  Receipt Date: 20150706
  Transmission Date: 20151125
  Serious: Yes (Hospitalization)
  Sender: FDA-Public Use
  Company Number: AU-ROCHE-669561

PATIENT
  Age: 75 Year
  Sex: Male
  Weight: 92.2 kg

DRUGS (13)
  1. VASOCARDOL [Concomitant]
     Route: 065
  2. RITUXIMAB [Suspect]
     Active Substance: RITUXIMAB
     Indication: DIFFUSE LARGE B-CELL LYMPHOMA
     Dosage: LAST DATE PRIOR TO SAE: 10 FEBRUARY 2010.
     Route: 042
     Dates: start: 20090908, end: 20100303
  3. CYCLOPHOSPHAMIDE. [Suspect]
     Active Substance: CYCLOPHOSPHAMIDE
     Indication: DIFFUSE LARGE B-CELL LYMPHOMA
     Dosage: DOSE: CYCLE 1 AND CYCLE 3.
     Route: 042
  4. CYCLOPHOSPHAMIDE. [Suspect]
     Active Substance: CYCLOPHOSPHAMIDE
     Dosage: DOSE: CYCLE 4 AND CYCLE 8.  LAST DATE PRIOR TO SAE: 23 DECEMBER 2009.
     Route: 042
  5. CLEXANE [Concomitant]
     Active Substance: ENOXAPARIN SODIUM
     Route: 065
     Dates: start: 20091025, end: 20091025
  6. BEVACIZUMAB [Suspect]
     Active Substance: BEVACIZUMAB
     Indication: DIFFUSE LARGE B-CELL LYMPHOMA
     Dosage: LAST DATE PRIOR TO SAE: 10 FEBRUARY 2010.
     Route: 042
     Dates: start: 20090907, end: 20100303
  7. PANAMAX (AUSTRALIA) [Concomitant]
     Route: 065
  8. VINCRISTINE [Suspect]
     Active Substance: VINCRISTINE
     Indication: DIFFUSE LARGE B-CELL LYMPHOMA
     Dosage: LAST DATE PRIOR TO SAE: 20 OCTOBER 2009
     Route: 042
  9. LIPITOR [Concomitant]
     Active Substance: ATORVASTATIN CALCIUM
     Route: 065
  10. DOXORUBICIN [Suspect]
     Active Substance: DOXORUBICIN
     Indication: DIFFUSE LARGE B-CELL LYMPHOMA
     Dosage: LAST DATE PRIOR TO SAE: 23 DECEMBER 2009.
     Route: 042
  11. TRITACE [Concomitant]
     Active Substance: RAMIPRIL
     Route: 065
  12. PREDNISOLONE. [Suspect]
     Active Substance: PREDNISOLONE
     Indication: DIFFUSE LARGE B-CELL LYMPHOMA
     Dosage: LAST DATE PRIOR TO SAE: 27 DEC 2009. FREQUENCY: DAY 1, 2, 3, 4 AND 5 EVERY 21 DAYS
     Route: 048
  13. ASPIRIN. [Concomitant]
     Active Substance: ASPIRIN
     Route: 065

REACTIONS (4)
  - Sinus node dysfunction [Recovered/Resolved]
  - Atrial fibrillation [Recovered/Resolved]
  - Atrial fibrillation [Recovered/Resolved]
  - Ejection fraction decreased [Not Recovered/Not Resolved]

NARRATIVE: CASE EVENT DATE: 20091024
